FAERS Safety Report 19634489 (Version 4)
Quarter: 2021Q3

REPORT INFORMATION
  Report Type: Report from Study
  Country: CA (occurrence: CA)
  Receive Date: 20210730
  Receipt Date: 20210930
  Transmission Date: 20211014
  Serious: Yes (Hospitalization, Other)
  Sender: FDA-Public Use
  Company Number: CA-SA-2020SA113962

PATIENT
  Age: 57 Year
  Sex: Female

DRUGS (7)
  1. COVID?19 VACCINE NOS. [Suspect]
     Active Substance: COVID-19 VACCINE NOS
     Indication: COVID-19 IMMUNISATION
     Route: 065
  2. ACETAMINOPHEN. [Concomitant]
     Active Substance: ACETAMINOPHEN
     Indication: PREMEDICATION
     Dosage: 975 MG
     Route: 048
  3. VITAMIN D [VITAMIN D NOS] [Concomitant]
     Active Substance: VITAMIN D NOS
     Dosage: UNK
     Route: 065
  4. AGALSIDASE BETA [Suspect]
     Active Substance: AGALSIDASE BETA
     Dosage: 80 MG, QOW
     Route: 041
     Dates: start: 20190227
  5. AGALSIDASE BETA [Suspect]
     Active Substance: AGALSIDASE BETA
     Dosage: 85 MG, QOW
     Route: 041
     Dates: start: 20210615
  6. AGALSIDASE BETA [Suspect]
     Active Substance: AGALSIDASE BETA
     Indication: FABRY^S DISEASE
     Dosage: 85 MG, QOW
     Route: 041
     Dates: start: 20180227
  7. METOPROLOL. [Concomitant]
     Active Substance: METOPROLOL
     Dosage: UNK
     Route: 065

REACTIONS (19)
  - Arrhythmia [Unknown]
  - Heart rate irregular [Not Recovered/Not Resolved]
  - Left ventricular failure [Recovered/Resolved]
  - Atrial fibrillation [Not Recovered/Not Resolved]
  - Fatigue [Recovering/Resolving]
  - Cardiac disorder [Recovered/Resolved]
  - Poor venous access [Unknown]
  - Asthenia [Unknown]
  - Pain [Recovered/Resolved]
  - Heart rate increased [Recovered/Resolved]
  - Acute pulmonary oedema [Unknown]
  - Extrasystoles [Not Recovered/Not Resolved]
  - Limb discomfort [Unknown]
  - Pain in extremity [Recovered/Resolved]
  - Myocardial necrosis marker increased [Recovered/Resolved]
  - COVID-19 [Unknown]
  - Arrhythmia [Recovered/Resolved]
  - Weight increased [Unknown]
  - Chest discomfort [Recovered/Resolved]

NARRATIVE: CASE EVENT DATE: 201807
